FAERS Safety Report 13560812 (Version 2)
Quarter: 2017Q2

REPORT INFORMATION
  Report Type: Report from Study
  Country: US (occurrence: US)
  Receive Date: 20170518
  Receipt Date: 20170525
  Transmission Date: 20170830
  Serious: No
  Sender: FDA-Public Use
  Company Number: US-AMGEN-USASL2017073268

PATIENT
  Age: 70 Year
  Sex: Male

DRUGS (1)
  1. ENBREL [Suspect]
     Active Substance: ETANERCEPT
     Indication: RHEUMATOID ARTHRITIS
     Dosage: 50 MG, EVERY 10 DAYS
     Route: 065

REACTIONS (8)
  - Colitis [Unknown]
  - Off label use [Unknown]
  - Adverse drug reaction [Unknown]
  - Rhinorrhoea [Unknown]
  - Gastrointestinal infection [Unknown]
  - Otorrhoea [Unknown]
  - Productive cough [Unknown]
  - Nasal disorder [Unknown]
